FAERS Safety Report 15566277 (Version 1)
Quarter: 2018Q4

REPORT INFORMATION
  Report Type: Spontaneous
  Country: US (occurrence: US)
  Receive Date: 20181030
  Receipt Date: 20181030
  Transmission Date: 20190205
  Serious: Yes (Other)
  Sender: FDA-Public Use
  Company Number: US-AMGEN-USASP2018149615

PATIENT
  Age: 60 Year
  Sex: Female

DRUGS (3)
  1. PARSABIV [Suspect]
     Active Substance: ETELCALCETIDE HYDROCHLORIDE
     Indication: HYPERPARATHYROIDISM SECONDARY
     Dosage: 3 MG, QWK
     Route: 065
  2. PARSABIV [Suspect]
     Active Substance: ETELCALCETIDE HYDROCHLORIDE
     Dosage: 5 MG, QWK
     Route: 065
  3. PARSABIV [Suspect]
     Active Substance: ETELCALCETIDE HYDROCHLORIDE
     Dosage: 10 MG, QWK
     Route: 065
     Dates: end: 2018

REACTIONS (5)
  - Breast necrosis [Unknown]
  - Mass [Unknown]
  - Underdose [Unknown]
  - Arteriovenous fistula site complication [Unknown]
  - Laboratory test abnormal [Unknown]
